FAERS Safety Report 9382527 (Version 1)
Quarter: 2013Q3

REPORT INFORMATION
  Report Type: Report from Study
  Country: US (occurrence: US)
  Receive Date: 20130703
  Receipt Date: 20130703
  Transmission Date: 20140515
  Serious: Yes (Other)
  Sender: FDA-Public Use
  Company Number: US-BAYER-2013-078649

PATIENT
  Sex: Male

DRUGS (3)
  1. BETASERON [Suspect]
     Indication: MULTIPLE SCLEROSIS
     Dosage: 8 MIU, QOD
     Route: 058
     Dates: start: 20090214, end: 20100515
  2. BETASERON [Suspect]
     Indication: MULTIPLE SCLEROSIS
     Dosage: 8 MIU, QOD
     Route: 058
     Dates: start: 20110303
  3. AMPYRA [Suspect]
     Dosage: UNK
     Dates: start: 2012

REACTIONS (3)
  - Headache [Recovered/Resolved]
  - Aphasia [Recovered/Resolved]
  - Insomnia [Recovered/Resolved]
